FAERS Safety Report 7569751-4 (Version None)
Quarter: 2011Q2

REPORT INFORMATION
  Report Type: 
  Country: None (occurrence: None)
  Receive Date: 20110624
  Receipt Date: 20110613
  Transmission Date: 20111010
  Serious: Yes (Other)
  Sender: FDA-Public Use
  Company Number: CA-JNJFOC-20110605797

PATIENT
  Sex: Female

DRUGS (3)
  1. ESTROGENIC SUBSTANCE [Concomitant]
  2. STELARA [Suspect]
     Indication: PSORIASIS
     Route: 058
     Dates: start: 20100421
  3. LEVOTHYROXINE SODIUM [Concomitant]

REACTIONS (1)
  - LYMPHOCYTE COUNT INCREASED [None]
